FAERS Safety Report 6206094-5 (Version None)
Quarter: 2009Q2

REPORT INFORMATION
  Report Type: 
  Country: None (occurrence: None)
  Receive Date: 20090528
  Receipt Date: 20090526
  Transmission Date: 20091009
  Serious: Yes (Other)
  Sender: FDA-Public Use
  Company Number: AU-BRISTOL-MYERS SQUIBB COMPANY-14637326

PATIENT
  Age: 81 Year
  Sex: Male
  Weight: 80 kg

DRUGS (5)
  1. KARVEA TABS [Suspect]
     Indication: ESSENTIAL HYPERTENSION
     Route: 048
  2. BRICANYL [Suspect]
     Dosage: DF = INSUFFILATION BRICANYL TURBUHALER
     Route: 055
  3. ASPIRIN [Suspect]
     Route: 048
  4. EZETROL [Suspect]
     Dosage: TABLET FORM
     Route: 048
  5. SURGAM [Suspect]
     Indication: ARTHRITIS
     Dosage: TABLET FORM
     Route: 048

REACTIONS (5)
  - DRY MOUTH [None]
  - ERYTHEMA MULTIFORME [None]
  - EYE PRURITUS [None]
  - LUPUS-LIKE SYNDROME [None]
  - ORAL MUCOSAL EXFOLIATION [None]
